FAERS Safety Report 7819663-3 (Version None)
Quarter: 2011Q4

REPORT INFORMATION
  Report Type: 
  Country: None (occurrence: None)
  Receive Date: 20111018
  Receipt Date: 20111012
  Transmission Date: 20120403
  Serious: Yes (Death)
  Sender: FDA-Public Use
  Company Number: US-CELGENEUS-163-21880-11101484

PATIENT
  Sex: Male

DRUGS (10)
  1. LISINOPRIL [Concomitant]
     Dosage: 2.5 MILLIGRAM
     Route: 065
  2. REVATIO [Concomitant]
     Dosage: 20 MILLIGRAM
     Route: 065
  3. ALLOPURINOL [Concomitant]
     Dosage: 100 MILLIGRAM
     Route: 065
  4. LASIX [Concomitant]
     Dosage: 40 MILLIGRAM
     Route: 065
  5. TOPROL-XL [Concomitant]
     Dosage: 25 MILLIGRAM
     Route: 065
  6. ASCORBIC ACID [Concomitant]
     Dosage: 1000 MILLIGRAM
     Route: 065
  7. FOLIC ACID [Concomitant]
     Dosage: 20 MILLIGRAM
     Route: 065
  8. REVLIMID [Suspect]
     Indication: MYELODYSPLASTIC SYNDROME
     Dosage: 10 MILLIGRAM
     Route: 048
     Dates: start: 20110725
  9. NIASPAN [Concomitant]
     Dosage: 500 MILLIGRAM
     Route: 065
  10. VITAMIN E [Concomitant]
     Dosage: 400 IU (INTERNATIONAL UNIT)
     Route: 065

REACTIONS (1)
  - DEATH [None]
